FAERS Safety Report 5385048-5 (Version None)
Quarter: 2007Q3

REPORT INFORMATION
  Report Type: 
  Country: None (occurrence: None)
  Receive Date: 20070710
  Receipt Date: 20070710
  Transmission Date: 20080115
  Serious: Yes (Hospitalization)
  Sender: FDA-Public Use
  Company Number: None

PATIENT
  Sex: Male
  Weight: 87.5 kg

DRUGS (1)
  1. GMCSF [Suspect]
     Indication: PROSTATE CANCER
     Dosage: 250MG/M2 DAYS 1-14 INJECTION
     Dates: start: 20061127

REACTIONS (3)
  - FALL [None]
  - LIMB INJURY [None]
  - THROMBOSIS [None]
